FAERS Safety Report 26127678 (Version 1)
Quarter: 2025Q4

REPORT INFORMATION
  Report Type: Spontaneous
  Country: CA (occurrence: CA)
  Receive Date: 20251206
  Receipt Date: 20251206
  Transmission Date: 20260118
  Serious: Yes (Other)
  Sender: ACCORD
  Company Number: None

PATIENT
  Age: 77 Year
  Sex: Female

DRUGS (3)
  1. TOPIRAMATE [Suspect]
     Active Substance: TOPIRAMATE
     Indication: Chronic tic disorder
     Dosage: 1 EVERY .5 DAY
  2. ARIPIPRAZOLE [Suspect]
     Active Substance: ARIPIPRAZOLE
     Indication: Chronic tic disorder
  3. PRAMIPEXOLE DIHYDROCHLORIDE [Concomitant]
     Active Substance: PRAMIPEXOLE DIHYDROCHLORIDE
     Indication: Parkinson^s disease
     Dosage: 1 EVERY 1 DAY

REACTIONS (5)
  - Drug ineffective [Unknown]
  - Dyskinesia [Unknown]
  - Cognitive disorder [Unknown]
  - Restlessness [Unknown]
  - Parkinson^s disease [Unknown]
